FAERS Safety Report 6555171-8 (Version None)
Quarter: 2010Q1

REPORT INFORMATION
  Report Type: 
  Country: None (occurrence: None)
  Receive Date: 20100126
  Receipt Date: 20100126
  Transmission Date: 20100710
  Serious: No
  Sender: FDA-Public Use
  Company Number: None

PATIENT
  Sex: Female
  Weight: 60.3284 kg

DRUGS (2)
  1. SIMVASTATIN [Suspect]
     Indication: BLOOD CHOLESTEROL INCREASED
     Dosage: 1 DAILY MOUTH
     Route: 048
     Dates: start: 20090101
  2. ZETIA [Suspect]
     Dosage: 1 DAILY MOUTH
     Route: 048
     Dates: start: 20090901

REACTIONS (1)
  - MYALGIA [None]
